FAERS Safety Report 15319005 (Version 1)
Quarter: 2018Q3

REPORT INFORMATION
  Report Type: Spontaneous
  Country: US (occurrence: US)
  Receive Date: 20180820
  Receipt Date: 20180820
  Transmission Date: 20181010
  Serious: Yes (Hospitalization)
  Sender: FDA-Public Use
  Company Number: None

PATIENT
  Sex: Male

DRUGS (7)
  1. ACYCLOVIR. [Concomitant]
     Active Substance: ACYCLOVIR
  2. SPRYCEL [Suspect]
     Active Substance: DASATINIB
     Indication: ACUTE LYMPHOCYTIC LEUKAEMIA
     Route: 048
     Dates: start: 20180726
  3. FLUCONAZOLE. [Concomitant]
     Active Substance: FLUCONAZOLE
  4. DEXMETHASON [Concomitant]
  5. ALLOPURINOL. [Concomitant]
     Active Substance: ALLOPURINOL
  6. LORAZEPAM. [Concomitant]
     Active Substance: LORAZEPAM
  7. LEVOFLAXACIN [Concomitant]
     Active Substance: LEVOFLOXACIN

REACTIONS (1)
  - Pyrexia [None]
